FAERS Safety Report 5164315-4 (Version None)
Quarter: 2006Q4

REPORT INFORMATION
  Report Type: 
  Country: None (occurrence: None)
  Receive Date: 20061127
  Receipt Date: 20061127
  Transmission Date: 20070319
  Serious: Yes (Hospitalization)
  Sender: FDA-Public Use
  Company Number: None

PATIENT
  Age: 85 Year
  Sex: Male

DRUGS (4)
  1. MIRAPEX [Suspect]
     Indication: PARKINSON'S DISEASE
  2. SYNTHROID [Concomitant]
  3. OPRESSOR [Concomitant]
  4. ISORDIL [Concomitant]

REACTIONS (1)
  - MENTAL STATUS CHANGES [None]
